FAERS Safety Report 4750162-1 (Version None)
Quarter: 2005Q3

REPORT INFORMATION
  Report Type: 
  Country: None (occurrence: None)
  Receive Date: 20050819
  Receipt Date: 20050808
  Transmission Date: 20060218
  Serious: Yes (Hospitalization)
  Sender: FDA-Public Use
  Company Number: 2005089758

PATIENT
  Sex: Male
  Weight: 77.1115 kg

DRUGS (4)
  1. DETROL LA [Suspect]
     Indication: HYPERTONIC BLADDER
     Dosage: 4 MG (4 MG, 1 IN 1 D), ORAL
     Route: 048
     Dates: start: 20040101
  2. ASPIRIN [Concomitant]
  3. NEURONTIN [Concomitant]
  4. ZOCOR [Concomitant]

REACTIONS (9)
  - BLOOD IRON DECREASED [None]
  - CONSTIPATION [None]
  - DIABETES MELLITUS [None]
  - GASTROOESOPHAGEAL REFLUX DISEASE [None]
  - HIP ARTHROPLASTY [None]
  - HYPERTENSION [None]
  - KIDNEY INFECTION [None]
  - LUNG DISORDER [None]
  - URINARY INCONTINENCE [None]
